FAERS Safety Report 5632429-8 (Version None)
Quarter: 2008Q1

REPORT INFORMATION
  Report Type: 
  Country: None (occurrence: None)
  Receive Date: 20080220
  Receipt Date: 20070601
  Transmission Date: 20080703
  Serious: No
  Sender: FDA-Public Use
  Company Number: US-ASTRAZENECA-2007UW13314

PATIENT
  Sex: Male

DRUGS (1)
  1. PLENDIL [Suspect]
     Route: 048

REACTIONS (2)
  - PRURITUS [None]
  - RASH [None]
